FAERS Safety Report 6720674-X (Version None)
Quarter: 2010Q2

REPORT INFORMATION
  Report Type: 
  Country: None (occurrence: None)
  Receive Date: 20100511
  Receipt Date: 20100428
  Transmission Date: 20101027
  Serious: Yes (Disabling)
  Sender: FDA-Public Use
  Company Number: DE-MYLANLABS-2010S1007439

PATIENT
  Age: 83 Year
  Sex: Male

DRUGS (1)
  1. CARBIDOPA + L-DOPA [Suspect]
     Indication: PARKINSON'S DISEASE

REACTIONS (3)
  - DYSPHAGIA [None]
  - MUSCULOSKELETAL STIFFNESS [None]
  - VARICOSE VEIN [None]
